FAERS Safety Report 11106351 (Version 1)
Quarter: 2015Q2

REPORT INFORMATION
  Report Type: Spontaneous
  Country: US (occurrence: None)
  Receive Date: 20150511
  Receipt Date: 20150511
  Transmission Date: 20150821
  Serious: Yes (Disabling)
  Sender: FDA-Public Use
  Company Number: None

PATIENT
  Age: 59 Year
  Sex: Male
  Weight: 120.2 kg

DRUGS (15)
  1. MATZIM LA [Concomitant]
     Active Substance: DILTIAZEM HYDROCHLORIDE
  2. CYP [Concomitant]
  3. GLIMEPIRIDE. [Concomitant]
     Active Substance: GLIMEPIRIDE
  4. DIGOXIN. [Concomitant]
     Active Substance: DIGOXIN
  5. TESTOSTERONE. [Concomitant]
     Active Substance: TESTOSTERONE
  6. FISH OIL [Concomitant]
     Active Substance: FISH OIL
  7. STRATTERA [Concomitant]
     Active Substance: ATOMOXETINE HYDROCHLORIDE
  8. CARVEDILOL. [Concomitant]
     Active Substance: CARVEDILOL
  9. BABY ASPIRIN [Concomitant]
     Active Substance: ASPIRIN
  10. MELATONIN [Concomitant]
     Active Substance: MELATONIN
  11. CINNAMON. [Concomitant]
     Active Substance: CINNAMON
  12. METFORMIN [Concomitant]
     Active Substance: METFORMIN HYDROCHLORIDE
  13. ADDERALL [Concomitant]
     Active Substance: AMPHETAMINE ASPARTATE\AMPHETAMINE SULFATE\DEXTROAMPHETAMINE SACCHARATE\DEXTROAMPHETAMINE SULFATE
  14. LOSARTAN [Concomitant]
     Active Substance: LOSARTAN
  15. INSULIN DETEMIR [Suspect]
     Active Substance: INSULIN DETEMIR
     Indication: GLYCOSYLATED HAEMOGLOBIN INCREASED
     Dosage: 50 IU EACH NIGHT AT BEDTIME GIVEN INTO/UNDER THE SKIN
     Dates: start: 20141210, end: 20150501

REACTIONS (5)
  - Pain [None]
  - Autoimmune disorder [None]
  - Red blood cell sedimentation rate abnormal [None]
  - Frustration [None]
  - Musculoskeletal stiffness [None]

NARRATIVE: CASE EVENT DATE: 20150105
